FAERS Safety Report 12962683 (Version 1)
Quarter: 2016Q4

REPORT INFORMATION
  Report Type: Spontaneous
  Country: US (occurrence: US)
  Receive Date: 20161121
  Receipt Date: 20161121
  Transmission Date: 20170207
  Serious: No
  Sender: FDA-Public Use
  Company Number: US-ASTRAZENECA-2016SF18266

PATIENT
  Age: 714 Month
  Sex: Female
  Weight: 74.8 kg

DRUGS (3)
  1. FASLODEX [Suspect]
     Active Substance: FULVESTRANT
     Indication: BREAST CANCER FEMALE
     Route: 030
     Dates: start: 201411
  2. XGEVA [Concomitant]
     Active Substance: DENOSUMAB
     Indication: BONE CANCER
     Route: 058
     Dates: start: 201411
  3. LETROZOLE. [Concomitant]
     Active Substance: LETROZOLE
     Indication: BREAST CANCER FEMALE
     Route: 048
     Dates: start: 201411

REACTIONS (6)
  - Injection site nodule [Unknown]
  - Injection site pain [Unknown]
  - Gait disturbance [Unknown]
  - Injection site scar [Unknown]
  - Hypertension [Unknown]
  - Injection site nerve damage [Unknown]

NARRATIVE: CASE EVENT DATE: 201601
